FAERS Safety Report 6821095-1 (Version None)
Quarter: 2010Q3

REPORT INFORMATION
  Report Type: 
  Country: None (occurrence: None)
  Receive Date: 20100707
  Receipt Date: 20071010
  Transmission Date: 20110219
  Serious: No
  Sender: FDA-Public Use
  Company Number: US-PFIZER INC-2007085614

PATIENT
  Sex: Male
  Weight: 86.4 kg

DRUGS (5)
  1. ZOLOFT [Suspect]
     Indication: DEPRESSION
     Dates: start: 20050101, end: 20060101
  2. ZOLOFT [Suspect]
     Indication: RESTLESSNESS
  3. VIAGRA [Suspect]
     Indication: LOSS OF LIBIDO
     Dates: start: 20050101
  4. WELLBUTRIN [Suspect]
     Indication: DEPRESSION
  5. EFFEXOR XR [Suspect]
     Indication: DEPRESSION
     Dates: end: 20070101

REACTIONS (9)
  - CONFUSIONAL STATE [None]
  - CRYING [None]
  - DIZZINESS [None]
  - HEADACHE [None]
  - HYPERHIDROSIS [None]
  - LOSS OF LIBIDO [None]
  - MOOD SWINGS [None]
  - NERVOUSNESS [None]
  - OCULAR HYPERAEMIA [None]
